FAERS Safety Report 9123030 (Version 2)
Quarter: 2013Q2

REPORT INFORMATION
  Report Type: Spontaneous
  Country: JP (occurrence: JP)
  Receive Date: 20130227
  Receipt Date: 20130415
  Transmission Date: 20140414
  Serious: Yes (Hospitalization, Other)
  Sender: FDA-Public Use
  Company Number: JP-JNJFOC-20130208926

PATIENT
  Age: 77 Year
  Sex: Male

DRUGS (6)
  1. DUROTEP MT [Suspect]
     Indication: CANCER PAIN
     Route: 062
     Dates: start: 20130213, end: 20130213
  2. WARFARIN POTASSIUM [Concomitant]
     Route: 048
  3. BERIZYM [Concomitant]
     Route: 048
  4. GASMOTIN [Concomitant]
     Route: 048
  5. OMEPRAZOLE [Concomitant]
     Route: 065
  6. RHYTHMY [Concomitant]
     Route: 048

REACTIONS (1)
  - Cerebral infarction [Recovering/Resolving]
